FAERS Safety Report 25646428 (Version 2)
Quarter: 2025Q3

REPORT INFORMATION
  Report Type: Spontaneous
  Country: CN (occurrence: CN)
  Receive Date: 20250805
  Receipt Date: 20250818
  Transmission Date: 20251021
  Serious: Yes (Hospitalization, Other)
  Sender: BRISTOL-MYERS SQUIBB COMPANY
  Company Number: CN-BRISTOL-MYERS SQUIBB COMPANY-2025-108425

PATIENT
  Age: 38 Year
  Sex: Male

DRUGS (2)
  1. AUGTYRO [Suspect]
     Active Substance: REPOTRECTINIB
     Indication: Lung neoplasm
     Dosage: 4 CAPSULES IN THE MORNING AND 4 CAPSULES IN THE EVENING EVERY DAY
     Route: 048
     Dates: start: 202502
  2. AUGTYRO [Suspect]
     Active Substance: REPOTRECTINIB
     Dosage: 3 CAPSULES IN THE MORNING AND 3 CAPSULES IN THE EVENING EVERY DAY
     Route: 048
     Dates: end: 20250723

REACTIONS (3)
  - Oxygen saturation decreased [Recovered/Resolved]
  - Orthopnoea [Recovered/Resolved]
  - Malignant neoplasm progression [Unknown]

NARRATIVE: CASE EVENT DATE: 20250301
